FAERS Safety Report 21863357 (Version 2)
Quarter: 2023Q1

REPORT INFORMATION
  Report Type: Spontaneous
  Country: US (occurrence: US)
  Receive Date: 20230115
  Receipt Date: 20230221
  Transmission Date: 20230418
  Serious: No
  Sender: FDA-Public Use
  Company Number: US-BoehringerIngelheim-2023-BI-212760

PATIENT
  Age: 90 Year
  Sex: Male

DRUGS (1)
  1. COMBIVENT RESPIMAT [Suspect]
     Active Substance: ALBUTEROL SULFATE\IPRATROPIUM BROMIDE
     Indication: Chronic obstructive pulmonary disease
     Dosage: AS NEEDED FOR BREATHING DIFFICULTY?STRENGTH: 20MCG/100MCG 120AC
     Dates: start: 2016

REACTIONS (1)
  - Intentional product use issue [Unknown]

NARRATIVE: CASE EVENT DATE: 20160101
